FAERS Safety Report 16389258 (Version 1)
Quarter: 2019Q2

REPORT INFORMATION
  Report Type: Spontaneous
  Country: US (occurrence: US)
  Receive Date: 20190603
  Receipt Date: 20190603
  Transmission Date: 20190711
  Serious: Yes (Hospitalization)
  Sender: FDA-Public Use
  Company Number: None

PATIENT
  Age: 56 Year
  Sex: Female

DRUGS (22)
  1. LISINOPRIL. [Concomitant]
     Active Substance: LISINOPRIL
  2. ATORVASTATIN [Concomitant]
     Active Substance: ATORVASTATIN
  3. HUMALOG [Concomitant]
     Active Substance: INSULIN LISPRO
  4. METFORMIN [Concomitant]
     Active Substance: METFORMIN HYDROCHLORIDE
  5. IBUPROFEN. [Concomitant]
     Active Substance: IBUPROFEN
  6. CAPECITABINE 500 MG TAB ACCO [Suspect]
     Active Substance: CAPECITABINE
     Indication: PANCREATIC CARCINOMA
     Route: 048
  7. ONDANSETRON [Concomitant]
     Active Substance: ONDANSETRON
  8. LIDODERM [Concomitant]
     Active Substance: LIDOCAINE
  9. MIRALAX [Concomitant]
     Active Substance: POLYETHYLENE GLYCOL 3350
  10. BENTYL [Concomitant]
     Active Substance: DICYCLOMINE HYDROCHLORIDE
  11. MAGNESIUM [Concomitant]
     Active Substance: MAGNESIUM
  12. MUCINEX [Concomitant]
     Active Substance: GUAIFENESIN
  13. LASIX [Concomitant]
     Active Substance: FUROSEMIDE
  14. MAXALT [Concomitant]
     Active Substance: RIZATRIPTAN BENZOATE
  15. TRIAMCINOLONE [Concomitant]
     Active Substance: TRIAMCINOLONE
  16. XANAX [Concomitant]
     Active Substance: ALPRAZOLAM
  17. DILTIAZEM. [Concomitant]
     Active Substance: DILTIAZEM
  18. PROMETHAZINE [Concomitant]
     Active Substance: PROMETHAZINE\PROMETHAZINE HYDROCHLORIDE
  19. CLONIDINE. [Concomitant]
     Active Substance: CLONIDINE
  20. GABAPENTIN. [Concomitant]
     Active Substance: GABAPENTIN
  21. ALBUTEROL. [Concomitant]
     Active Substance: ALBUTEROL
  22. ADVAIR HFA [Concomitant]
     Active Substance: FLUTICASONE PROPIONATE\SALMETEROL XINAFOATE

REACTIONS (4)
  - Body temperature decreased [None]
  - Sepsis [None]
  - White blood cell count decreased [None]
  - Liver abscess [None]

NARRATIVE: CASE EVENT DATE: 20190525
